FAERS Safety Report 13280487 (Version 2)
Quarter: 2017Q2

REPORT INFORMATION
  Report Type: Spontaneous
  Country: DK (occurrence: DK)
  Receive Date: 20170301
  Receipt Date: 20170403
  Transmission Date: 20170830
  Serious: Yes (Other)
  Sender: FDA-Public Use
  Company Number: DK-ROCHE-1899296

PATIENT
  Sex: Female
  Weight: 75 kg

DRUGS (1)
  1. HERCEPTIN [Suspect]
     Active Substance: TRASTUZUMAB
     Indication: GASTRIC CANCER
     Dosage: DATE OF RECENT DOSE: 14/FEB/2017
     Route: 042

REACTIONS (2)
  - Recurrent cancer [Unknown]
  - Papilloedema [Unknown]
